FAERS Safety Report 4432714-1 (Version None)
Quarter: 2004Q3

REPORT INFORMATION
  Report Type: 
  Country: None (occurrence: None)
  Receive Date: 20040820
  Receipt Date: 20040805
  Transmission Date: 20050211
  Serious: Yes (Hospitalization, Other)
  Sender: FDA-Public Use
  Company Number: 2004-BP-06687MX

PATIENT
  Age: 70 Year
  Sex: Male

DRUGS (1)
  1. SECOTEX (TAMSULOSIN HYDROCHLORIDE) [Suspect]
     Indication: PROSTATIC OBSTRUCTION
     Dosage: 0.4 MG (0.4 MG, 1 KA O.D.)  PO
     Route: 048
     Dates: start: 20040211, end: 20040515

REACTIONS (1)
  - DRUG INEFFECTIVE [None]
